FAERS Safety Report 23338955 (Version 1)
Quarter: 2023Q4

REPORT INFORMATION
  Report Type: Spontaneous
  Country: PT (occurrence: PT)
  Receive Date: 20231226
  Receipt Date: 20231226
  Transmission Date: 20240110
  Serious: Yes (Other)
  Sender: FDA-Public Use
  Company Number: PT-AKCEA THERAPEUTICS, INC.-2023IS002854

PATIENT

DRUGS (1)
  1. TEGSEDI [Suspect]
     Active Substance: INOTERSEN SODIUM
     Indication: Hereditary neuropathic amyloidosis
     Dosage: 284 MILLIGRAM, QW
     Route: 058

REACTIONS (9)
  - Renal impairment [Recovered/Resolved]
  - Amyloidosis [Recovered/Resolved]
  - Kidney fibrosis [Recovered/Resolved]
  - Renal tubular atrophy [Recovered/Resolved]
  - Tubulointerstitial nephritis and uveitis syndrome [Recovered/Resolved]
  - Albuminuria [Recovered/Resolved]
  - Complement factor C3 decreased [Recovered/Resolved]
  - Complement factor C1 decreased [Recovered/Resolved]
  - Lymphocytic infiltration [Recovered/Resolved]
